FAERS Safety Report 8565075-7 (Version None)
Quarter: 2012Q3

REPORT INFORMATION
  Report Type: 
  Country: None (occurrence: None)
  Receive Date: 20120803
  Receipt Date: 20120723
  Transmission Date: 20120928
  Serious: Yes (Other)
  Sender: FDA-Public Use
  Company Number: GB-ROCHE-1092397

PATIENT

DRUGS (1)
  1. MABTHERA [Suspect]
     Indication: IMMUNOSUPPRESSION
     Dosage: 0.83 TO 1.02 MG/KG
     Route: 042

REACTIONS (4)
  - DIABETES MELLITUS [None]
  - NEUTROPENIA [None]
  - MENTAL DISORDER [None]
  - SEPSIS [None]
